FAERS Safety Report 10838832 (Version 1)
Quarter: 2015Q1

REPORT INFORMATION
  Report Type: Report from Study
  Country: US (occurrence: None)
  Receive Date: 20150218
  Receipt Date: 20150218
  Transmission Date: 20150721
  Serious: Yes (Other)
  Sender: FDA-Public Use
  Company Number: ADR-2015-00307

PATIENT
  Age: 16 Year
  Sex: Male

DRUGS (1)
  1. LIORESAL [Suspect]
     Active Substance: BACLOFEN
     Indication: MUSCLE SPASTICITY
     Dosage: 210 MCG/DAY (SEE B5)

REACTIONS (5)
  - Hypotonia [None]
  - Dysstasia [None]
  - Incorrect dose administered [None]
  - Weight bearing difficulty [None]
  - Device computer issue [None]

NARRATIVE: CASE EVENT DATE: 20101202
